FAERS Safety Report 8609868-6 (Version None)
Quarter: 2012Q3

REPORT INFORMATION
  Report Type: 
  Country: None (occurrence: None)
  Receive Date: 20120821
  Receipt Date: 20120815
  Transmission Date: 20120928
  Serious: Yes (Other)
  Sender: FDA-Public Use
  Company Number: US-ROCHE-1035006

PATIENT
  Sex: Male
  Weight: 97.61 kg

DRUGS (5)
  1. LIALDA [Concomitant]
  2. AZATHIOPRINE SODIUM [Concomitant]
  3. COLAZAL [Concomitant]
  4. ACCUTANE [Suspect]
     Indication: ACNE
     Dates: start: 19990101, end: 19990701
  5. PREDNISONE TAB [Concomitant]

REACTIONS (7)
  - INFLAMMATORY BOWEL DISEASE [None]
  - EMOTIONAL DISTRESS [None]
  - DIVERTICULITIS [None]
  - COLONIC POLYP [None]
  - CROHN'S DISEASE [None]
  - ANXIETY [None]
  - COLITIS ULCERATIVE [None]
